FAERS Safety Report 5493880-2 (Version None)
Quarter: 2007Q4

REPORT INFORMATION
  Report Type: 
  Country: None (occurrence: None)
  Receive Date: 20071018
  Receipt Date: 20071001
  Transmission Date: 20080405
  Serious: Yes (Other)
  Sender: FDA-Public Use
  Company Number: 2007332598

PATIENT
  Age: 51 Year
  Sex: Female
  Weight: 68.0396 kg

DRUGS (5)
  1. LISTERINE ANTISEPTIC MOUTHWASH (MENTHOL, METHYL SALICYLATE, EUCALYPTOL [Suspect]
     Indication: DENTURE WEARER
     Dosage: ENOUGH TO COVER DENTURES, ICF 2X'S, ORAL
     Route: 048
     Dates: start: 20070927, end: 20070929
  2. ALLEGRA (FEXOFENADINE HYDROCHLORIDE) [Concomitant]
  3. ADVAIR DISKUS 100/50 [Concomitant]
  4. XOPENEX [Concomitant]
  5. RANITIDINE [Concomitant]

REACTIONS (5)
  - ENAMEL ANOMALY [None]
  - ORAL DISCOMFORT [None]
  - ORAL FUNGAL INFECTION [None]
  - RASH [None]
  - THERMAL BURN [None]
